FAERS Safety Report 6270261-5 (Version None)
Quarter: 2009Q3

REPORT INFORMATION
  Report Type: 
  Country: None (occurrence: None)
  Receive Date: 20090716
  Receipt Date: 20090619
  Transmission Date: 20100115
  Serious: Yes (Other)
  Sender: FDA-Public Use
  Company Number: JP-GENENTECH-286714

PATIENT
  Age: 63 Year
  Sex: Male

DRUGS (1)
  1. AVASTIN [Suspect]
     Indication: RADIATION INJURY
     Dosage: 10 MG/KG, Q2W
     Route: 041

REACTIONS (1)
  - CEREBRAL HAEMORRHAGE [None]
